FAERS Safety Report 17889470 (Version 3)
Quarter: 2020Q4

REPORT INFORMATION
  Report Type: Report from Study
  Country: GB (occurrence: GB)
  Receive Date: 20200612
  Receipt Date: 20201016
  Transmission Date: 20210113
  Serious: Yes (Other)
  Sender: FDA-Public Use
  Company Number: NVSC2020GB163005

PATIENT
  Sex: Female

DRUGS (3)
  1. SULPHASALAZINE [Suspect]
     Active Substance: SULFASALAZINE
     Indication: PRODUCT USED FOR UNKNOWN INDICATION
     Dosage: UNK
     Route: 065
     Dates: end: 201911
  2. LEFLUNOMIDE. [Suspect]
     Active Substance: LEFLUNOMIDE
     Indication: PRODUCT USED FOR UNKNOWN INDICATION
     Dosage: UNK
     Route: 065
  3. HYRIMOZ [Suspect]
     Active Substance: ADALIMUMAB-ADAZ
     Indication: PSORIATIC ARTHROPATHY
     Dosage: 40 MG, Q2W
     Route: 058
     Dates: start: 20190510

REACTIONS (11)
  - Peripheral swelling [Unknown]
  - Hypokinesia [Unknown]
  - Depressed mood [Unknown]
  - Psoriatic arthropathy [Unknown]
  - Pain [Unknown]
  - Swelling [Unknown]
  - Skin burning sensation [Unknown]
  - Type 1 diabetes mellitus [Unknown]
  - Fatigue [Unknown]
  - Arthralgia [Unknown]
  - Psoriasis [Unknown]
